FAERS Safety Report 11112202 (Version 1)
Quarter: 2015Q2

REPORT INFORMATION
  Report Type: Spontaneous
  Country: US (occurrence: None)
  Receive Date: 20150513
  Receipt Date: 20150513
  Transmission Date: 20150821
  Serious: No
  Sender: FDA-Public Use
  Company Number: None

PATIENT
  Age: 8 Year
  Sex: Male

DRUGS (2)
  1. CETIRIZINE HYDROCHLORIDE. [Suspect]
     Active Substance: CETIRIZINE HYDROCHLORIDE
     Indication: EYE PRURITUS
     Dosage: 1 TEASPOON DAILY
     Route: 048
     Dates: start: 20150504, end: 20150505
  2. CETIRIZINE HYDROCHLORIDE. [Suspect]
     Active Substance: CETIRIZINE HYDROCHLORIDE
     Indication: SNEEZING
     Dosage: 1 TEASPOON DAILY
     Route: 048
     Dates: start: 20150504, end: 20150505

REACTIONS (4)
  - Similar reaction on previous exposure to drug [None]
  - Agitation [None]
  - Crying [None]
  - Mood altered [None]

NARRATIVE: CASE EVENT DATE: 20150505
